FAERS Safety Report 15027569 (Version 2)
Quarter: 2022Q2

REPORT INFORMATION
  Report Type: Spontaneous
  Country: JP (occurrence: JP)
  Receive Date: 20180619
  Receipt Date: 20220630
  Transmission Date: 20220721
  Serious: Yes (Other)
  Sender: FDA-Public Use
  Company Number: JP-002147023-PHJP2018JP012286

PATIENT
  Age: 68 Year
  Sex: Male

DRUGS (7)
  1. LUCENTIS [Suspect]
     Active Substance: RANIBIZUMAB
     Indication: Polypoidal choroidal vasculopathy
     Route: 050
     Dates: start: 20160531
  2. LUCENTIS [Suspect]
     Active Substance: RANIBIZUMAB
     Route: 050
     Dates: start: 20160705
  3. LUCENTIS [Suspect]
     Active Substance: RANIBIZUMAB
     Route: 050
     Dates: start: 20170124
  4. LUCENTIS [Suspect]
     Active Substance: RANIBIZUMAB
     Route: 050
     Dates: start: 20170615
  5. FLUORESCEIN SODIUM [Suspect]
     Active Substance: FLUORESCEIN SODIUM
     Indication: Angiogram retina
     Dosage: ONCE/SINGLE
     Route: 040
  6. EYLEA [Concomitant]
     Active Substance: AFLIBERCEPT
     Indication: Polypoidal choroidal vasculopathy
     Route: 031
     Dates: start: 20170328
  7. EYLEA [Concomitant]
     Active Substance: AFLIBERCEPT
     Dosage: UNK (TWICE)
     Route: 031

REACTIONS (4)
  - Polypoidal choroidal vasculopathy [Unknown]
  - Disease progression [Unknown]
  - Visual acuity reduced [Unknown]
  - Eye pruritus [Unknown]

NARRATIVE: CASE EVENT DATE: 20170615
